FAERS Safety Report 6333310-1 (Version None)
Quarter: 2009Q3

REPORT INFORMATION
  Report Type: 
  Country: None (occurrence: None)
  Receive Date: 20090826
  Receipt Date: 20050201
  Transmission Date: 20100115
  Serious: Yes (Hospitalization)
  Sender: FDA-Public Use
  Company Number: 20050200024

PATIENT
  Age: 72 Year
  Sex: Male

DRUGS (7)
  1. ATIVAN [Suspect]
     Dosage: IV
     Route: 042
     Dates: start: 20050117, end: 20050117
  2. PROMETHAZINE [Suspect]
     Indication: PRURITUS
     Dosage: IM
     Route: 030
  3. DIPHENHYDRAMINE HCL [Suspect]
     Dosage: IV
     Route: 042
     Dates: start: 20050117, end: 20050117
  4. BEANO (ALPHA-D-GALACTOSIDASE) [Concomitant]
  5. ATENOLOL [Concomitant]
  6. ENALAPRIL MALEATE [Concomitant]
  7. ASPIRIN [Concomitant]

REACTIONS (2)
  - HALLUCINATION [None]
  - INCOHERENT [None]
